FAERS Safety Report 5022714-5 (Version None)
Quarter: 2006Q2

REPORT INFORMATION
  Report Type: 
  Country: None (occurrence: None)
  Receive Date: 20060605
  Receipt Date: 20060517
  Transmission Date: 20061013
  Serious: Yes (Other)
  Sender: FDA-Public Use
  Company Number: CA200605004158

PATIENT
  Age: 14 Year
  Sex: Female

DRUGS (1)
  1. STRATTERA [Suspect]
     Dosage: 280 MG,

REACTIONS (3)
  - INTENTIONAL OVERDOSE [None]
  - MYDRIASIS [None]
  - SELF-INJURIOUS IDEATION [None]
